FAERS Safety Report 5265713-0 (Version None)
Quarter: 2007Q1

REPORT INFORMATION
  Report Type: 
  Country: None (occurrence: None)
  Receive Date: 20061213
  Receipt Date: 20041101
  Transmission Date: 20070707
  Serious: Yes (Other)
  Sender: FDA-Public Use
  Company Number: 2004UW22537

PATIENT
  Age: 54 Year
  Sex: Female
  Weight: 72.574 kg

DRUGS (5)
  1. IRESSA [Suspect]
     Indication: NON-SMALL CELL LUNG CANCER
     Dosage: 250 MG QD PO
     Route: 048
  2. PAXIL [Concomitant]
  3. ESTRADIOL [Concomitant]
  4. PERCOCET [Concomitant]
  5. ZANTAC [Concomitant]

REACTIONS (2)
  - RASH [None]
  - SWELLING FACE [None]
